FAERS Safety Report 4883216-X (Version None)
Quarter: 2006Q1

REPORT INFORMATION
  Report Type: 
  Country: None (occurrence: None)
  Receive Date: 20060117
  Receipt Date: 20060117
  Transmission Date: 20060701
  Serious: Yes (Hospitalization)
  Sender: FDA-Public Use
  Company Number: None

PATIENT
  Age: 64 Year
  Sex: Female

DRUGS (1)
  1. ALTACE [Suspect]
     Indication: HYPERTENSION
     Dosage: ORAL; 5.0 MILLIGRAM
     Dates: start: 20041129, end: 20051129

REACTIONS (2)
  - ANGIONEUROTIC OEDEMA [None]
  - DRUG DOSE OMISSION [None]
